FAERS Safety Report 17263480 (Version 1)
Quarter: 2020Q1

REPORT INFORMATION
  Report Type: Spontaneous
  Country: US (occurrence: US)
  Receive Date: 20200112
  Receipt Date: 20200112
  Transmission Date: 20200409
  Serious: No
  Sender: FDA-Public Use
  Company Number: None

PATIENT
  Age: 38 Year
  Sex: Female
  Weight: 51.75 kg

DRUGS (1)
  1. CIPROFLOXACIN. [Suspect]
     Active Substance: CIPROFLOXACIN
     Indication: URINARY TRACT INFECTION
     Dosage: ?          QUANTITY:1 TABLET(S);?
     Route: 048
     Dates: start: 20200109, end: 20200111

REACTIONS (7)
  - Back pain [None]
  - Anxiety [None]
  - Arthralgia [None]
  - Paraesthesia [None]
  - Malaise [None]
  - Musculoskeletal pain [None]
  - Nausea [None]

NARRATIVE: CASE EVENT DATE: 20200109
